FAERS Safety Report 23232391 (Version 1)
Quarter: 2023Q4

REPORT INFORMATION
  Report Type: Other
  Country: JP (occurrence: JP)
  Receive Date: 20231128
  Receipt Date: 20231128
  Transmission Date: 20240110
  Serious: Yes (Hospitalization)
  Sender: FDA-Public Use
  Company Number: JP-WW-2023-09510

PATIENT
  Age: 0 Year

DRUGS (5)
  1. LUNESTA [Suspect]
     Active Substance: ESZOPICLONE
     Route: 064
  2. LUNESTA [Suspect]
     Active Substance: ESZOPICLONE
     Route: 063
  3. CLONAZEPAM [Concomitant]
     Active Substance: CLONAZEPAM
     Route: 064
  4. DULOXETINE [Concomitant]
     Active Substance: DULOXETINE
     Route: 064
  5. Chlorpromazine and preparations [Concomitant]
     Route: 064

REACTIONS (3)
  - Drug withdrawal syndrome neonatal [Unknown]
  - Foetal exposure during pregnancy [Unknown]
  - Exposure via breast milk [Unknown]
